FAERS Safety Report 8604311-5 (Version None)
Quarter: 2012Q3

REPORT INFORMATION
  Report Type: 
  Country: None (occurrence: None)
  Receive Date: 20120820
  Receipt Date: 20120808
  Transmission Date: 20120928
  Serious: Yes (Other)
  Sender: FDA-Public Use
  Company Number: US-JNJFOC-20120805804

PATIENT
  Sex: Male
  Weight: 87.09 kg

DRUGS (7)
  1. TRAMADOL [Concomitant]
     Indication: PAIN
     Route: 048
  2. REMICADE [Suspect]
     Indication: SWEAT GLAND DISORDER
     Route: 042
     Dates: start: 20120101, end: 20120101
  3. ALL OTHER THERAPEUTICS [Suspect]
     Indication: SWEAT GLAND DISORDER
     Route: 065
  4. ALL OTHER THERAPEUTICS [Suspect]
     Indication: RHEUMATOID ARTHRITIS
     Route: 065
  5. REMICADE [Suspect]
     Indication: RHEUMATOID ARTHRITIS
     Route: 042
     Dates: start: 20120101, end: 20120101
  6. METHOTREXATE [Concomitant]
     Route: 048
  7. FOLIC ACID [Concomitant]
     Route: 048

REACTIONS (9)
  - SINUSITIS [None]
  - LOW DENSITY LIPOPROTEIN DECREASED [None]
  - HYPOVITAMINOSIS [None]
  - IMMUNE SYSTEM DISORDER [None]
  - BRONCHITIS [None]
  - MALAISE [None]
  - PAIN [None]
  - BLOOD GLUCOSE DECREASED [None]
  - CHILLS [None]
